FAERS Safety Report 21546737 (Version 1)
Quarter: 2022Q4

REPORT INFORMATION
  Report Type: Spontaneous
  Country: FR (occurrence: FR)
  Receive Date: 20221103
  Receipt Date: 20221103
  Transmission Date: 20230113
  Serious: Yes (Hospitalization)
  Sender: FDA-Public Use
  Company Number: None

PATIENT
  Age: 38 Year
  Sex: Male
  Weight: 54 kg

DRUGS (7)
  1. DOXORUBICIN [Suspect]
     Active Substance: DOXORUBICIN
     Indication: Non-Hodgkin^s lymphoma
     Dosage: UNIT DOSE: 440 MG/M2 , FREQUENCY TIME : 1 TOTAL, DURATION : 1 YEAR
     Dates: start: 1989, end: 1990
  2. METHOTREXATE [Suspect]
     Active Substance: METHOTREXATE
     Indication: Non-Hodgkin^s lymphoma
     Dosage: FREQUENCY TIME : 1 TOTAL, DURATION : 1 YEAR
     Dates: start: 1989, end: 1990
  3. VINCRISTINE SULFATE [Suspect]
     Active Substance: VINCRISTINE SULFATE
     Indication: Non-Hodgkin^s lymphoma
     Dosage: UNIT DOSE: 25 MG/M2 , FREQUENCY TIME : 1 TOTAL, DURATION : 1 YEAR
     Dates: start: 1989, end: 1990
  4. ETOPOSIDE [Suspect]
     Active Substance: ETOPOSIDE
     Indication: Non-Hodgkin^s lymphoma
     Dosage: UNIT DOSE: 800 MG/M2 , FREQUENCY TIME : 1 TOTAL, DURATION : 1 YEAR
     Dates: start: 1989, end: 1990
  5. CYTARABINE [Suspect]
     Active Substance: CYTARABINE
     Indication: Non-Hodgkin^s lymphoma
     Dosage: FREQUENCY TIME :1 TOTAL, DURATION :1 YEAR
     Dates: start: 1989, end: 1990
  6. ASPARAGINASE [Suspect]
     Active Substance: ASPARAGINASE
     Indication: Non-Hodgkin^s lymphoma
     Dosage: /M2, UNIT DOSE: 1700000 IU , FREQUENCY TIME : 1 TOTAL, DURATION : 1 YEAR
     Dates: start: 1989, end: 1990
  7. CYCLOPHOSPHAMIDE [Suspect]
     Active Substance: CYCLOPHOSPHAMIDE
     Indication: Non-Hodgkin^s lymphoma
     Dosage: FREQUENCY TIME : 1 TOTAL, DURATION : 1 YEAR
     Dates: start: 1989, end: 1990

REACTIONS (1)
  - Cardiac failure [Recovering/Resolving]

NARRATIVE: CASE EVENT DATE: 20220627
